FAERS Safety Report 9438069 (Version 1)
Quarter: 2013Q3

REPORT INFORMATION
  Report Type: Spontaneous
  Country: US (occurrence: US)
  Receive Date: 20130802
  Receipt Date: 20130802
  Transmission Date: 20140515
  Serious: No
  Sender: FDA-Public Use
  Company Number: US-BRISTOL-MYERS SQUIBB COMPANY-16778615

PATIENT
  Age: 70 Year
  Sex: Female
  Weight: 74.37 kg

DRUGS (9)
  1. WARFARIN SODIUM [Suspect]
     Indication: ATRIAL FIBRILLATION
     Route: 048
     Dates: start: 20120611
  2. SOTALOL [Concomitant]
     Dosage: TAB
  3. OMEPRAZOLE [Concomitant]
  4. METHIMAZOLE [Concomitant]
  5. AMOXICILLIN [Concomitant]
  6. PLAQUENIL [Concomitant]
  7. VITAMIN D [Concomitant]
  8. GARLIC [Concomitant]
  9. COQ10 [Concomitant]

REACTIONS (3)
  - Skin discolouration [Not Recovered/Not Resolved]
  - Rash [Not Recovered/Not Resolved]
  - International normalised ratio fluctuation [Unknown]
